FAERS Safety Report 14302486 (Version 3)
Quarter: 2018Q1

REPORT INFORMATION
  Report Type: Spontaneous
  Country: FR (occurrence: FR)
  Receive Date: 20171219
  Receipt Date: 20180106
  Transmission Date: 20180509
  Serious: Yes (Disabling)
  Sender: FDA-Public Use
  Company Number: FR-AUROBINDO-AUR-APL-2017-45849

PATIENT
  Age: 32 Year
  Sex: Male

DRUGS (56)
  1. PAROXETINE. [Suspect]
     Active Substance: PAROXETINE
     Indication: PRODUCT USED FOR UNKNOWN INDICATION
     Dosage: 2 TO 3 WEEKS
     Route: 048
     Dates: start: 20110201
  2. CITALOPRAM [Suspect]
     Active Substance: CITALOPRAM HYDROBROMIDE
     Indication: PRODUCT USED FOR UNKNOWN INDICATION
     Dosage: ()
     Dates: start: 20110318
  3. THIOCOLCHICOSIDE [Concomitant]
     Active Substance: THIOCOLCHICOSIDE
     Dates: start: 20101213
  4. HYDROXYZINE [Suspect]
     Active Substance: HYDROXYZINE HYDROCHLORIDE
     Indication: PRODUCT USED FOR UNKNOWN INDICATION
     Dosage: ()
     Dates: start: 20120131
  5. TETRAZEPAM [Suspect]
     Active Substance: TETRAZEPAM
     Indication: PRODUCT USED FOR UNKNOWN INDICATION
     Dosage: ()
     Route: 048
     Dates: start: 20110228
  6. TETRAZEPAM [Suspect]
     Active Substance: TETRAZEPAM
     Dosage: ()
     Route: 048
     Dates: start: 20110705
  7. TETRAZEPAM [Suspect]
     Active Substance: TETRAZEPAM
     Dosage: ()
     Route: 048
     Dates: start: 20110726
  8. LAROXYL [Suspect]
     Active Substance: AMITRIPTYLINE HYDROCHLORIDE
     Indication: NECK PAIN
     Dosage: 5-8 DROPS (1)
     Route: 065
     Dates: start: 20110219
  9. MIOREL (THIOCOLCHICOSIDE) [Concomitant]
     Active Substance: THIOCOLCHICOSIDE
     Indication: PRODUCT USED FOR UNKNOWN INDICATION
     Route: 048
     Dates: start: 20101213
  10. TANGANIL [Concomitant]
     Active Substance: ACETYLLEUCINE
     Indication: PRODUCT USED FOR UNKNOWN INDICATION
     Route: 048
     Dates: start: 20110303
  11. COVATINE [Concomitant]
     Indication: PRODUCT USED FOR UNKNOWN INDICATION
     Dosage: ()
     Route: 048
     Dates: start: 20120620, end: 201207
  12. DEXTROPROPOXYPHENE NAPSILATE W/PARACETAMOL [Suspect]
     Active Substance: ACETAMINOPHEN\PROPOXYPHENE NAPSYLATE
     Indication: PAIN
     Dates: start: 20100606
  13. PARACETAMOL [Concomitant]
     Active Substance: ACETAMINOPHEN
     Dates: start: 20101213
  14. THIOCOLCHICOSIDE [Concomitant]
     Active Substance: THIOCOLCHICOSIDE
     Dates: start: 20100606
  15. IBUPROFEN. [Concomitant]
     Active Substance: IBUPROFEN
     Dosage: ()
     Dates: start: 20101213
  16. DOLIPRANE [Concomitant]
     Active Substance: ACETAMINOPHEN
     Route: 048
     Dates: start: 20110201
  17. CLONAZEPAM. [Suspect]
     Active Substance: CLONAZEPAM
     Dates: start: 20110303, end: 20110327
  18. UVEDOSE [Concomitant]
     Active Substance: CHOLECALCIFEROL
     Indication: PRODUCT USED FOR UNKNOWN INDICATION
     Dosage: 1000000 IU
     Route: 065
     Dates: start: 20110219
  19. DOLIPRANE [Concomitant]
     Active Substance: ACETAMINOPHEN
     Indication: PRODUCT USED FOR UNKNOWN INDICATION
     Route: 048
     Dates: start: 20101213
  20. DOLIPRANE [Concomitant]
     Active Substance: ACETAMINOPHEN
     Route: 048
     Dates: start: 20110328
  21. COLECALCIFEROL [Concomitant]
     Active Substance: CHOLECALCIFEROL
     Dosage: 1000000 IU
     Dates: start: 20110219
  22. CAPTODIAME HYDROCHLORIDE [Concomitant]
     Dosage: ()
     Dates: start: 20120620
  23. RIVOTRIL [Suspect]
     Active Substance: CLONAZEPAM
     Indication: NECK PAIN
     Dosage: UNK
     Route: 065
     Dates: start: 20110718, end: 201110
  24. RIVOTRIL [Suspect]
     Active Substance: CLONAZEPAM
     Route: 065
     Dates: start: 20110303, end: 20110327
  25. RIVOTRIL [Suspect]
     Active Substance: CLONAZEPAM
     Dosage: 5-8 DROPS (1)
     Route: 065
     Dates: start: 20110328
  26. SEROPRAM (CITALOPRAM HYDROBROMIDE) [Suspect]
     Active Substance: CITALOPRAM HYDROBROMIDE
     Indication: PRODUCT USED FOR UNKNOWN INDICATION
     Dosage: UNK
     Route: 048
     Dates: start: 20110318
  27. IXEL [Suspect]
     Active Substance: MILNACIPRAN HYDROCHLORIDE
     Indication: PANIC ATTACK
     Dosage: 2 DF, UNK
     Route: 048
     Dates: start: 20110322
  28. CLONAZEPAM. [Suspect]
     Active Substance: CLONAZEPAM
     Indication: NECK PAIN
     Dosage: 5-8 DROPS ()
     Dates: start: 20110328
  29. CLONAZEPAM. [Suspect]
     Active Substance: CLONAZEPAM
     Dosage: 5-8 DROPS ()
     Dates: start: 20110219, end: 20110302
  30. CLONAZEPAM. [Suspect]
     Active Substance: CLONAZEPAM
     Dosage: ()
     Dates: start: 20110718
  31. NUREFLEX [Concomitant]
     Active Substance: IBUPROFEN
     Indication: PRODUCT USED FOR UNKNOWN INDICATION
     Dosage: ()
     Route: 048
     Dates: start: 20101213
  32. PRAXINOR                           /00276601/ [Concomitant]
     Active Substance: CAFEDRINE\THEODRENALINE
     Indication: PRODUCT USED FOR UNKNOWN INDICATION
     Route: 048
     Dates: start: 20101127
  33. THIOCOLCHICOSIDE [Concomitant]
     Active Substance: THIOCOLCHICOSIDE
     Dates: start: 20110201
  34. ETHANOLAMINE ACETYLLEUCINATE [Concomitant]
     Dates: start: 20110303
  35. RIVOTRIL [Suspect]
     Active Substance: CLONAZEPAM
     Dosage: 5-8 DROPS (1)
     Route: 065
     Dates: start: 20110219, end: 20110302
  36. TEMERIT [Suspect]
     Active Substance: NEBIVOLOL
     Indication: CARDIAC DISORDER
     Dosage: 2 DF, UNK
     Route: 048
     Dates: start: 20110718, end: 201207
  37. AMITRIPTYLINE HYDROCHLORIDE. [Suspect]
     Active Substance: AMITRIPTYLINE HYDROCHLORIDE
     Indication: NECK PAIN
     Dosage: 5-8 DROPS ()
     Route: 065
     Dates: start: 20110219
  38. CLONAZEPAM. [Suspect]
     Active Substance: CLONAZEPAM
     Dosage: ()
     Dates: start: 20110510
  39. PARACETAMOL [Concomitant]
     Active Substance: ACETAMINOPHEN
     Dates: start: 20110201
  40. PARACETAMOL [Concomitant]
     Active Substance: ACETAMINOPHEN
     Dates: start: 20110328
  41. DIAZEPAM. [Concomitant]
     Active Substance: DIAZEPAM
     Dosage: IN TOTAL
     Dates: start: 20101115, end: 20101115
  42. MILNACIPRAN [Suspect]
     Active Substance: MILNACIPRAN
     Indication: PANIC ATTACK
     Dates: start: 20110322
  43. RIVOTRIL [Suspect]
     Active Substance: CLONAZEPAM
     Dosage: ()
     Route: 065
     Dates: start: 20110510
  44. MIOREL (THIOCOLCHICOSIDE) [Concomitant]
     Active Substance: THIOCOLCHICOSIDE
     Route: 048
     Dates: start: 20100606
  45. SOLUPRED                           /00016201/ [Concomitant]
     Active Substance: PREDNISOLONE
     Indication: PRODUCT USED FOR UNKNOWN INDICATION
     Dosage: ()
     Route: 048
     Dates: start: 20110726
  46. VALIUM [Concomitant]
     Active Substance: DIAZEPAM
     Indication: PRODUCT USED FOR UNKNOWN INDICATION
     Dosage: IN TOTAL
     Route: 051
     Dates: start: 20101115, end: 20101115
  47. MIOREL (THIOCOLCHICOSIDE) [Concomitant]
     Active Substance: THIOCOLCHICOSIDE
     Route: 048
     Dates: start: 20101210
  48. ETIFOXINE [Concomitant]
     Active Substance: ETIFOXINE
     Dosage: ()
     Dates: start: 20120327
  49. TEMERIT [Suspect]
     Active Substance: NEBIVOLOL
     Route: 048
     Dates: start: 20101115, end: 20110509
  50. TEMERIT [Suspect]
     Active Substance: NEBIVOLOL
     Route: 048
     Dates: start: 20110510, end: 201207
  51. DI-ANTALVIC [Suspect]
     Active Substance: ACETAMINOPHEN\PROPOXYPHENE HYDROCHLORIDE
     Indication: PAIN
     Dosage: 2 DF, UNK
     Route: 048
     Dates: start: 20100606
  52. ATARAX [Suspect]
     Active Substance: HYDROXYZINE HYDROCHLORIDE
     Indication: PRODUCT USED FOR UNKNOWN INDICATION
     Dosage: UNK
     Route: 048
     Dates: start: 20120131, end: 201207
  53. MIOREL (THIOCOLCHICOSIDE) [Concomitant]
     Active Substance: THIOCOLCHICOSIDE
     Route: 048
     Dates: start: 20110201
  54. STRESAM [Concomitant]
     Active Substance: ETIFOXINE
     Indication: PRODUCT USED FOR UNKNOWN INDICATION
     Dosage: ()
     Route: 048
     Dates: start: 20120327
  55. THIOCOLCHICOSIDE [Concomitant]
     Active Substance: THIOCOLCHICOSIDE
     Dates: start: 20101210
  56. PREDNISOLONE. [Concomitant]
     Active Substance: PREDNISOLONE
     Dosage: ()
     Dates: start: 20110726

REACTIONS (24)
  - Suicidal ideation [Recovered/Resolved]
  - Adverse event [Unknown]
  - Tinnitus [Recovered/Resolved]
  - Dyspnoea [Unknown]
  - Tachycardia [Recovered/Resolved]
  - Hypertonia [Unknown]
  - Hypoacusis [Recovered/Resolved]
  - Memory impairment [Recovered/Resolved]
  - Neurosis [Recovered/Resolved]
  - Post-traumatic stress disorder [Recovered/Resolved]
  - Panic attack [Recovered/Resolved]
  - Psychotic disorder [Recovered/Resolved]
  - Anxiety [Recovered/Resolved]
  - Intervertebral disc disorder [Unknown]
  - Pain in extremity [Unknown]
  - Musculoskeletal pain [Unknown]
  - Personal relationship issue [Recovered/Resolved]
  - Hallucination, auditory [Recovered/Resolved]
  - Visual impairment [Recovered/Resolved]
  - Agoraphobia [Recovered/Resolved]
  - Erectile dysfunction [Recovering/Resolving]
  - Drug intolerance [Recovering/Resolving]
  - Asthenia [Unknown]
  - Malaise [Recovered/Resolved]

NARRATIVE: CASE EVENT DATE: 2010
